FAERS Safety Report 9099160 (Version 1)
Quarter: 2013Q1

REPORT INFORMATION
  Report Type: Spontaneous
  Country: US (occurrence: US)
  Receive Date: 20130214
  Receipt Date: 20130214
  Transmission Date: 20140127
  Serious: Yes (Other)
  Sender: FDA-Public Use
  Company Number: CHPA2013US002943

PATIENT
  Age: 2 Year
  Sex: Female

DRUGS (2)
  1. TRIAMINIC NIGHT TIME COLD + COUGH [Suspect]
     Indication: NASOPHARYNGITIS
     Dosage: UNK, UNK
     Route: 048
     Dates: start: 20130125, end: 20130126
  2. AMOXICILLIN [Concomitant]
     Indication: NASOPHARYNGITIS
     Dosage: UNK, UNK
     Dates: start: 20130128, end: 20130130

REACTIONS (6)
  - Hypersensitivity [Recovering/Resolving]
  - Rash macular [Recovering/Resolving]
  - Feeling hot [Recovering/Resolving]
  - Rash [Recovering/Resolving]
  - Overdose [Unknown]
  - Incorrect dose administered [Unknown]
